FAERS Safety Report 9459051 (Version 7)
Quarter: 2014Q2

REPORT INFORMATION
  Report Type: Spontaneous
  Country: US (occurrence: US)
  Receive Date: 20130814
  Receipt Date: 20140407
  Transmission Date: 20141212
  Serious: No
  Sender: FDA-Public Use
  Company Number: US-VERTEX PHARMACEUTICALS INC-2013-008745

PATIENT
  Age: 42 Year
  Sex: Male
  Weight: 58.96 kg

DRUGS (8)
  1. INCIVEK [Suspect]
     Indication: HEPATITIS C
     Dosage: 750 MG, TID
     Route: 048
     Dates: start: 20130809, end: 20130812
  2. INCIVEK [Suspect]
     Dosage: 750 MG, TID
     Route: 048
     Dates: start: 20130814, end: 20131103
  3. RIBAVIRIN [Suspect]
     Indication: HEPATITIS C
     Dosage: 1000 MG (600MG IN EVENING, 400MG IN MORNING), QD
     Route: 048
     Dates: start: 20130809, end: 20130812
  4. RIBAVIRIN [Suspect]
     Dosage: 1000 MG (600MG IN EVENING, 400MG IN MORNING), QD
     Dates: start: 20130814
  5. PEGASYS [Suspect]
     Indication: HEPATITIS C
     Dosage: 180 ?G, QW
     Route: 058
     Dates: start: 20130809
  6. LOVASTATIN [Concomitant]
     Indication: BLOOD CHOLESTEROL INCREASED
     Dosage: 20 MG, QD
     Route: 048
     Dates: end: 20130813
  7. ATENOLOL [Concomitant]
     Indication: HYPERTENSION
     Route: 048
  8. FLUOXETINE HCL [Concomitant]
     Indication: DEPRESSION
     Route: 048

REACTIONS (12)
  - Oral administration complication [Not Recovered/Not Resolved]
  - Labelled drug-drug interaction medication error [Unknown]
  - Injection site erythema [Not Recovered/Not Resolved]
  - Rectal discharge [Recovering/Resolving]
  - Ocular hyperaemia [Not Recovered/Not Resolved]
  - Vision blurred [Not Recovered/Not Resolved]
  - Eyelid oedema [Not Recovered/Not Resolved]
  - Decreased appetite [Not Recovered/Not Resolved]
  - Malaise [Recovered/Resolved]
  - Drug dose omission [Recovered/Resolved]
  - Fatigue [Not Recovered/Not Resolved]
  - Diarrhoea [Recovering/Resolving]
